FAERS Safety Report 24312088 (Version 4)
Quarter: 2024Q4

REPORT INFORMATION
  Report Type: Report from Study
  Country: IE (occurrence: IE)
  Receive Date: 20240912
  Receipt Date: 20241205
  Transmission Date: 20250115
  Serious: Yes (Other)
  Sender: ROCHE
  Company Number: IE-ROCHE-10000030916

PATIENT
  Sex: Female

DRUGS (1)
  1. TOCILIZUMAB [Suspect]
     Active Substance: TOCILIZUMAB
     Indication: Polymyalgia rheumatica
     Route: 058
     Dates: start: 20240718

REACTIONS (13)
  - Injection site bruising [Recovering/Resolving]
  - Injection site erythema [Recovering/Resolving]
  - Injection site pain [Recovered/Resolved]
  - Injection site swelling [Recovering/Resolving]
  - Mouth ulceration [Unknown]
  - Mobility decreased [Not Recovered/Not Resolved]
  - Pain in extremity [Not Recovered/Not Resolved]
  - Back pain [Recovered/Resolved]
  - Ill-defined disorder [Recovered/Resolved]
  - Dysgeusia [Recovered/Resolved]
  - COVID-19 [Recovering/Resolving]
  - Respiratory tract infection [Recovering/Resolving]
  - Off label use [Unknown]
